FAERS Safety Report 8139491-1 (Version None)
Quarter: 2012Q1

REPORT INFORMATION
  Report Type: 
  Country: None (occurrence: None)
  Receive Date: 20120215
  Receipt Date: 20120209
  Transmission Date: 20120608
  Serious: Yes (Hospitalization)
  Sender: FDA-Public Use
  Company Number: BR-ABBOTT-12P-020-0903530-00

PATIENT
  Sex: Male
  Weight: 60 kg

DRUGS (1)
  1. HUMIRA [Suspect]
     Indication: ANKYLOSING SPONDYLITIS
     Route: 058
     Dates: start: 20100205

REACTIONS (7)
  - PSORIASIS [None]
  - STOMATITIS [None]
  - PYREXIA [None]
  - ABASIA [None]
  - SKIN EXFOLIATION [None]
  - TREMOR [None]
  - SKIN FISSURES [None]
